FAERS Safety Report 5231195-8 (Version None)
Quarter: 2007Q1

REPORT INFORMATION
  Report Type: 
  Country: None (occurrence: None)
  Receive Date: 20070206
  Receipt Date: 20070201
  Transmission Date: 20070707
  Serious: Yes (Death)
  Sender: FDA-Public Use
  Company Number: 2007AP00740

PATIENT
  Age: 75 Year
  Sex: Male

DRUGS (2)
  1. SEROQUEL [Suspect]
     Indication: SENILE DEMENTIA
     Route: 048
     Dates: start: 20070104
  2. SEROQUEL [Suspect]
     Route: 048
     Dates: start: 20070105

REACTIONS (1)
  - ACUTE MYOCARDIAL INFARCTION [None]
